FAERS Safety Report 5203055-X (Version None)
Quarter: 2006Q4

REPORT INFORMATION
  Report Type: 
  Country: None (occurrence: None)
  Receive Date: 20061016
  Receipt Date: 20060803
  Transmission Date: 20070319
  Serious: Yes (Other)
  Sender: FDA-Public Use
  Company Number: 2006096714

PATIENT
  Sex: Female
  Weight: 127.0072 kg

DRUGS (6)
  1. NEURONTIN [Suspect]
     Indication: DEPRESSION
     Dosage: 300 MG (100 MG, 3 IN 1 D)
     Dates: start: 20060701, end: 20060731
  2. GEODON [Suspect]
     Indication: DEPRESSION
     Dosage: 20 MG (20 MG, 1 IN 1 D)
  3. PROZAC [Suspect]
     Indication: DEPRESSION
     Dosage: 20 MG (20 MG, 1 IN 1 D)
     Dates: start: 20060701, end: 20060731
  4. ATIVAN [Concomitant]
  5. NORVASC [Concomitant]
  6. LEVOTHYROXINE SODIUM [Concomitant]

REACTIONS (6)
  - CRYING [None]
  - DRUG INTOLERANCE [None]
  - PAIN [None]
  - PSYCHOMOTOR HYPERACTIVITY [None]
  - SOMNOLENCE [None]
  - TREMOR [None]
